FAERS Safety Report 8619991-8 (Version None)
Quarter: 2012Q3

REPORT INFORMATION
  Report Type: 
  Country: None (occurrence: None)
  Receive Date: 20120816
  Receipt Date: 20120816
  Transmission Date: 20120928
  Serious: Yes (Other)
  Sender: FDA-Public Use
  Company Number: None

PATIENT
  Age: 27 Year
  Sex: Male
  Weight: 97.5234 kg

DRUGS (1)
  1. SUBUTEX [Suspect]
     Dosage: 4 TO 8MG, DAILY, SL
     Dates: start: 20100303, end: 20120814

REACTIONS (3)
  - ABDOMINAL PAIN UPPER [None]
  - VOMITING [None]
  - WEIGHT DECREASED [None]
